FAERS Safety Report 8601397-9 (Version None)
Quarter: 2012Q3

REPORT INFORMATION
  Report Type: 
  Country: None (occurrence: None)
  Receive Date: 20120817
  Receipt Date: 20120814
  Transmission Date: 20120928
  Serious: Yes (Other)
  Sender: FDA-Public Use
  Company Number: IT-PFIZER INC-2012198478

PATIENT

DRUGS (1)
  1. SUTENT [Suspect]
     Indication: RENAL CELL CARCINOMA
     Dosage: 50 MG, 1X/DAY
     Route: 048
     Dates: start: 20110818

REACTIONS (5)
  - HYPOTHYROIDISM [None]
  - ASTHENIA [None]
  - PIGMENTATION DISORDER [None]
  - DERMATITIS BULLOUS [None]
  - MUCOSAL INFLAMMATION [None]
